FAERS Safety Report 7963389-2 (Version None)
Quarter: 2011Q4

REPORT INFORMATION
  Report Type: 
  Country: None (occurrence: None)
  Receive Date: 20111205
  Receipt Date: 20111121
  Transmission Date: 20120403
  Serious: Yes (Hospitalization, Other)
  Sender: FDA-Public Use
  Company Number: DSJ-2011-22126

PATIENT
  Age: 4 Decade
  Sex: Female

DRUGS (6)
  1. BENICAR [Suspect]
     Indication: HYPERTENSION
     Dosage: SEE IMAGE
     Route: 048
     Dates: start: 20090101, end: 20110901
  2. BENICAR [Suspect]
     Indication: HYPERTENSION
     Dosage: SEE IMAGE
     Route: 048
     Dates: start: 20090101, end: 20090101
  3. BENICAR [Suspect]
     Indication: HYPERTENSION
     Dosage: SEE IMAGE
     Route: 048
     Dates: start: 20111107, end: 20111118
  4. BENICAR [Suspect]
     Indication: HYPERTENSION
     Dosage: SEE IMAGE
     Route: 048
     Dates: start: 20110901, end: 20110101
  5. ANESTHESIA [Suspect]
     Dates: start: 20090101, end: 20090101
  6. LEVOTHYROXINE SODIUM [Concomitant]

REACTIONS (13)
  - DRY MOUTH [None]
  - PARAESTHESIA [None]
  - DRUG INEFFECTIVE [None]
  - DIZZINESS [None]
  - CARDIO-RESPIRATORY ARREST [None]
  - OEDEMA PERIPHERAL [None]
  - HYPOTENSION [None]
  - COMA [None]
  - HYPERAEMIA [None]
  - HEADACHE [None]
  - TREATMENT NONCOMPLIANCE [None]
  - BLOOD PRESSURE SYSTOLIC INCREASED [None]
  - DRUG ADMINISTRATION ERROR [None]
